FAERS Safety Report 24949771 (Version 1)
Quarter: 2025Q1

REPORT INFORMATION
  Report Type: Spontaneous
  Country: US (occurrence: None)
  Receive Date: 20250209
  Receipt Date: 20250209
  Transmission Date: 20250409
  Serious: Yes (Other)
  Sender: FDA-CTU
  Company Number: None

PATIENT
  Sex: Female
  Weight: 75.6 kg

DRUGS (8)
  1. RINVOQ [Suspect]
     Active Substance: UPADACITINIB
     Indication: Eczema
     Dosage: OTHER QUANTITY : 1 TABLET(S);?FREQUENCY : DAILY;?
     Route: 048
     Dates: start: 20231015, end: 20240531
  2. RINVOQ [Suspect]
     Active Substance: UPADACITINIB
     Indication: Colonic haematoma
  3. PHENTERMINE [Concomitant]
     Active Substance: PHENTERMINE
  4. advil/tylenol [Concomitant]
  5. DOAN^S PILLS [Concomitant]
     Active Substance: MAGNESIUM SALICYLATE
  6. VITAMIN C [Concomitant]
     Active Substance: ASCORBIC ACID
  7. MAGNESIUM [Concomitant]
     Active Substance: MAGNESIUM
  8. POTASSIUM [Concomitant]
     Active Substance: POTASSIUM

REACTIONS (23)
  - Headache [None]
  - Pain [None]
  - Acne [None]
  - Fatigue [None]
  - Somnolence [None]
  - Loss of consciousness [None]
  - Somnambulism [None]
  - Road traffic accident [None]
  - Alopecia [None]
  - Madarosis [None]
  - Madarosis [None]
  - Hair growth abnormal [None]
  - Herpes simplex [None]
  - Muscle atrophy [None]
  - Dysstasia [None]
  - Asthenia [None]
  - Vision blurred [None]
  - Weight increased [None]
  - Tinnitus [None]
  - Abdominal distension [None]
  - Oedema peripheral [None]
  - Hepatic enzyme increased [None]
  - Gastrointestinal bacterial infection [None]
